FAERS Safety Report 7829445-4 (Version None)
Quarter: 2011Q4

REPORT INFORMATION
  Report Type: 
  Country: None (occurrence: None)
  Receive Date: 20111020
  Receipt Date: 20111020
  Transmission Date: 20120403
  Serious: Yes (Other)
  Sender: FDA-Public Use
  Company Number: CN-SANTEN INC.-INC-11-000051

PATIENT
  Age: 67 Year
  Sex: Male

DRUGS (2)
  1. PILOCARPINE [Suspect]
     Indication: INTRAOCULAR PRESSURE INCREASED
     Route: 047
  2. TIMOLOL MALEATE [Suspect]
     Indication: INTRAOCULAR PRESSURE INCREASED
     Route: 047

REACTIONS (6)
  - ANTERIOR CHAMBER INFLAMMATION [None]
  - IRIS ADHESIONS [None]
  - INTRAOCULAR PRESSURE TEST ABNORMAL [None]
  - IRIS BOMBE [None]
  - IRIS DISORDER [None]
  - DRUG INEFFECTIVE [None]
